FAERS Safety Report 17591751 (Version 1)
Quarter: 2020Q1

REPORT INFORMATION
  Report Type: Spontaneous
  Country: BR (occurrence: BR)
  Receive Date: 20200327
  Receipt Date: 20200327
  Transmission Date: 20200409
  Serious: Yes (Other)
  Sender: FDA-Public Use
  Company Number: BR-TORRENT-00005272

PATIENT
  Age: 72 Year
  Sex: Male
  Weight: 85 kg

DRUGS (6)
  1. LOSARTAN 50 MG [Suspect]
     Active Substance: LOSARTAN
     Indication: PRODUCT USED FOR UNKNOWN INDICATION
     Dosage: UNKNOWN
     Route: 048
  2. VERTIX [Concomitant]
     Indication: LABYRINTHITIS
     Dosage: TWO TIMES PER WEEK
  3. TORLOS [Suspect]
     Active Substance: LOSARTAN POTASSIUM
     Indication: HYPERTENSION
     Dosage: ONE TABLET IN THE MORNING
     Route: 048
     Dates: start: 2012
  4. ARADOIS [Concomitant]
     Active Substance: LOSARTAN POTASSIUM
     Indication: PRODUCT USED FOR UNKNOWN INDICATION
     Dosage: UNKNOWN
  5. AMLODIPINE BESYLATE. [Concomitant]
     Active Substance: AMLODIPINE BESYLATE
     Indication: HYPERTENSION
     Dosage: UNKNOWN
     Dates: start: 202002
  6. OMEPRAZOLE. [Concomitant]
     Active Substance: OMEPRAZOLE
     Indication: EPIGASTRIC DISCOMFORT
     Dosage: EIGHT YEARS AGO
     Route: 048
     Dates: start: 2012

REACTIONS (3)
  - Prescription drug used without a prescription [Unknown]
  - Peripheral swelling [Not Recovered/Not Resolved]
  - Prostatic operation [Recovered/Resolved]

NARRATIVE: CASE EVENT DATE: 202003
